FAERS Safety Report 24555323 (Version 1)
Quarter: 2024Q4

REPORT INFORMATION
  Report Type: Spontaneous
  Country: US (occurrence: US)
  Receive Date: 20241028
  Receipt Date: 20241028
  Transmission Date: 20250114
  Serious: Yes (Other)
  Sender: EPIC PHARM
  Company Number: US-EPICPHARMA-US-2024EPCLIT01302

PATIENT
  Age: 76 Year
  Sex: Male

DRUGS (4)
  1. TRIAMCINOLONE ACETONIDE [Suspect]
     Active Substance: TRIAMCINOLONE ACETONIDE
     Indication: Cystoid macular oedema
     Dosage: 40/1
     Route: 031
  2. PREDNISONE [Suspect]
     Active Substance: PREDNISONE
     Indication: Infective scleritis
     Route: 065
  3. PREDNISONE [Suspect]
     Active Substance: PREDNISONE
     Indication: Cystoid macular oedema
  4. IBUPROFEN [Concomitant]
     Active Substance: IBUPROFEN
     Indication: Product used for unknown indication
     Route: 065

REACTIONS (5)
  - Infective scleritis [Recovering/Resolving]
  - Condition aggravated [Recovering/Resolving]
  - Aspergillus infection [Recovering/Resolving]
  - Product use in unapproved indication [Unknown]
  - Product use issue [Unknown]
